FAERS Safety Report 6713832-1 (Version None)
Quarter: 2010Q2

REPORT INFORMATION
  Report Type: 
  Country: None (occurrence: None)
  Receive Date: 20100506
  Receipt Date: 20100428
  Transmission Date: 20101027
  Serious: Yes (Other)
  Sender: FDA-Public Use
  Company Number: AU-AMGEN-QUU407451

PATIENT
  Sex: Female

DRUGS (4)
  1. NEULASTA [Suspect]
     Indication: CHEMOTHERAPY
     Route: 065
  2. TAXOTERE [Concomitant]
  3. CARBOPLATIN [Concomitant]
  4. HERCEPTIN [Concomitant]

REACTIONS (2)
  - FEBRILE NEUTROPENIA [None]
  - LEUKOCYTOSIS [None]
